FAERS Safety Report 6418125-8 (Version None)
Quarter: 2009Q4

REPORT INFORMATION
  Report Type: 
  Country: None (occurrence: None)
  Receive Date: 20091026
  Receipt Date: 20091013
  Transmission Date: 20100525
  Serious: Yes (Disabling)
  Sender: FDA-Public Use
  Company Number: ADR38152009

PATIENT
  Age: 48 Year
  Sex: Female

DRUGS (4)
  1. SIMVASTATIN [Suspect]
     Indication: HYPERLIPIDAEMIA
     Dosage: 20 MG, ORAL USE
     Route: 048
     Dates: start: 20080125, end: 20080410
  2. COVERSYL [Concomitant]
  3. SYMBICORT [Concomitant]
  4. VENTOLIN [Concomitant]

REACTIONS (3)
  - ASTHMA [None]
  - CONDITION AGGRAVATED [None]
  - EXERCISE TOLERANCE DECREASED [None]
